FAERS Safety Report 21303229 (Version 1)
Quarter: 2022Q3

REPORT INFORMATION
  Report Type: Report from Study
  Country: CN (occurrence: CN)
  Receive Date: 20220907
  Receipt Date: 20220907
  Transmission Date: 20221027
  Serious: Yes (Other)
  Sender: FDA-Public Use
  Company Number: CN-GUERBET-CN-20220144

PATIENT
  Age: 72 Year
  Sex: Male

DRUGS (1)
  1. IOVERSOL [Suspect]
     Active Substance: IOVERSOL
     Indication: Angiogram cerebral
     Route: 065

REACTIONS (1)
  - Contrast encephalopathy [Recovered/Resolved]
